FAERS Safety Report 8925218 (Version 3)
Quarter: 2014Q2

REPORT INFORMATION
  Report Type: Spontaneous
  Country: US (occurrence: US)
  Receive Date: 20121126
  Receipt Date: 20140430
  Transmission Date: 20141212
  Serious: Yes (Hospitalization, Other)
  Sender: FDA-Public Use
  Company Number: US-BAYER-2012-121772

PATIENT
  Age: 25 Year
  Sex: Female
  Weight: 74.83 kg

DRUGS (3)
  1. YASMIN [Suspect]
     Dosage: UNK
     Dates: start: 20040419, end: 200811
  2. DOXYCYCLINE [Concomitant]
     Dosage: UNK
  3. SULFOXYL [Concomitant]
     Dosage: UNK

REACTIONS (9)
  - Cholecystectomy [None]
  - Cholecystitis chronic [None]
  - Emotional distress [None]
  - Anhedonia [None]
  - Pain [None]
  - Injury [None]
  - General physical health deterioration [None]
  - Anxiety [None]
  - Pain [None]
